FAERS Safety Report 9826269 (Version 1)
Quarter: 2014Q1

REPORT INFORMATION
  Report Type: Spontaneous
  Country: US (occurrence: US)
  Receive Date: 20140117
  Receipt Date: 20140117
  Transmission Date: 20141002
  Serious: No
  Sender: FDA-Public Use
  Company Number: US-BIOGENIDEC-2014BI000823

PATIENT
  Sex: 0

DRUGS (3)
  1. TECFIDERA [Suspect]
     Indication: PRODUCT USED FOR UNKNOWN INDICATION
  2. SOLUMEDROL [Concomitant]
  3. PREDNISONE [Concomitant]

REACTIONS (3)
  - Affective disorder [Unknown]
  - General symptom [Unknown]
  - Flushing [Unknown]
